FAERS Safety Report 5311577-6 (Version None)
Quarter: 2007Q2

REPORT INFORMATION
  Report Type: 
  Country: None (occurrence: None)
  Receive Date: 20070426
  Receipt Date: 20070426
  Transmission Date: 20071010
  Serious: Yes (Other)
  Sender: FDA-Public Use
  Company Number: None

PATIENT
  Age: 58 Year
  Sex: Male
  Weight: 90 kg

DRUGS (9)
  1. LISINOPRIL AND HYDROCHLOROTHIAZIDE [Suspect]
     Indication: BLOOD PRESSURE
     Dosage: 2 TABS PO BID
     Route: 048
     Dates: start: 20060809, end: 20061121
  2. CLOPIDOGREL [Concomitant]
  3. DILTIAZEM [Concomitant]
  4. NIACIN [Concomitant]
  5. PENTOXIFYLLINE [Concomitant]
  6. SIMVASTATIN [Concomitant]
  7. TERAZOSIN HCL [Concomitant]
  8. METFORMIN HCL [Concomitant]
  9. FLUOXETINE [Concomitant]

REACTIONS (1)
  - COUGH [None]
